FAERS Safety Report 14034258 (Version 2)
Quarter: 2018Q4

REPORT INFORMATION
  Report Type: Spontaneous
  Country: US (occurrence: US)
  Receive Date: 20171003
  Receipt Date: 20181003
  Transmission Date: 20190204
  Serious: No
  Sender: FDA-Public Use
  Company Number: US-TEVA-804054ACC

PATIENT

DRUGS (1)
  1. CLONAZEPAM. [Suspect]
     Active Substance: CLONAZEPAM
     Indication: RESTLESS LEGS SYNDROME
     Dosage: 1 MILLIGRAM DAILY;

REACTIONS (4)
  - Product storage error [Unknown]
  - Drug effect decreased [Unknown]
  - Adverse event [Unknown]
  - Product quality issue [Unknown]
